FAERS Safety Report 20846917 (Version 1)
Quarter: 2022Q2

REPORT INFORMATION
  Report Type: Spontaneous
  Country: US (occurrence: US)
  Receive Date: 20220519
  Receipt Date: 20220519
  Transmission Date: 20220720
  Serious: Yes (Other)
  Sender: FDA-Public Use
  Company Number: US-JNJFOC-20220533153

PATIENT
  Sex: Male

DRUGS (7)
  1. XARELTO [Suspect]
     Active Substance: RIVAROXABAN
     Indication: Product used for unknown indication
     Route: 048
     Dates: start: 20211105
  2. XARELTO [Suspect]
     Active Substance: RIVAROXABAN
     Route: 048
  3. FARXIGA [Concomitant]
     Active Substance: DAPAGLIFLOZIN PROPANEDIOL
  4. ROSUVASTATIN [Concomitant]
     Active Substance: ROSUVASTATIN
  5. GABAPENTIN [Concomitant]
     Active Substance: GABAPENTIN
  6. LOSARTAN [Concomitant]
     Active Substance: LOSARTAN
  7. ERGOCALCIFEROL [Concomitant]
     Active Substance: ERGOCALCIFEROL

REACTIONS (1)
  - Atrial fibrillation [Unknown]
